FAERS Safety Report 10032442 (Version 1)
Quarter: 2014Q1

REPORT INFORMATION
  Report Type: Spontaneous
  Country: GB (occurrence: None)
  Receive Date: 20140320
  Receipt Date: 20140320
  Transmission Date: 20141002
  Serious: Yes (Life-Threatening, Hospitalization)
  Sender: FDA-Public Use
  Company Number: AUR-APL-2014-02827

PATIENT
  Age: 66 Year
  Sex: Female
  Weight: 58 kg

DRUGS (8)
  1. OLANZAPINE [Suspect]
     Indication: AGITATION
     Dosage: 5MG 5MG, 1 IN 1D, ORAL
     Route: 048
     Dates: start: 20140202, end: 20140217
  2. AMITRIPTYLINE [Concomitant]
  3. ATENOLOL [Concomitant]
  4. FOLIC ACID [Concomitant]
  5. LEVOTHYROXINE [Concomitant]
  6. QUETIAPINE [Concomitant]
  7. SIMVASTATIN [Concomitant]
  8. ZOPICLONE [Concomitant]

REACTIONS (6)
  - Sepsis [None]
  - Hypotension [None]
  - Tachycardia [None]
  - Urinary tract infection [None]
  - Thrombocytopenia [None]
  - Anaemia [None]
